FAERS Safety Report 8486370-6 (Version None)
Quarter: 2012Q3

REPORT INFORMATION
  Report Type: 
  Country: None (occurrence: None)
  Receive Date: 20120703
  Receipt Date: 20120627
  Transmission Date: 20120928
  Serious: Yes (Hospitalization)
  Sender: FDA-Public Use
  Company Number: GB-GLAXOSMITHKLINE-B0807402A

PATIENT
  Sex: Female

DRUGS (13)
  1. LORAZEPAM [Suspect]
     Indication: PRODUCT USED FOR UNKNOWN INDICATION
     Dosage: 1MG THREE TIMES PER DAY
     Route: 065
  2. OMEPRAZOLE [Concomitant]
     Dosage: 30MG PER DAY
  3. RAMIPRIL [Concomitant]
     Dosage: 2.5MG PER DAY
  4. BENDROFLUMETHIAZIDE [Concomitant]
     Dosage: 2.5MG PER DAY
  5. METOCLOPRAMIDE [Suspect]
     Indication: PRODUCT USED FOR UNKNOWN INDICATION
     Route: 065
  6. TETRABENAZINE [Suspect]
     Indication: PRODUCT USED FOR UNKNOWN INDICATION
     Dosage: 4.5MG PER DAY
     Route: 065
  7. PROPRANOLOL [Suspect]
     Indication: PRODUCT USED FOR UNKNOWN INDICATION
     Dosage: 10MG SIX TIMES PER DAY
     Route: 065
  8. MIRTAZAPINE [Suspect]
     Indication: PRODUCT USED FOR UNKNOWN INDICATION
     Dosage: 30MG PER DAY
     Route: 065
  9. ACRIVASTINE [Concomitant]
     Dosage: 8MG THREE TIMES PER DAY
  10. FENOFIBRATE [Concomitant]
     Dosage: 160MG PER DAY
  11. BECONASE [Concomitant]
  12. ATORVASTATIN [Concomitant]
     Dosage: 40MG AT NIGHT
  13. PAROXETINE HYDROCHLORIDE [Suspect]
     Indication: DEPRESSION
     Dosage: 20MG TWICE PER DAY
     Route: 048
     Dates: start: 20111101

REACTIONS (5)
  - HALLUCINATION [None]
  - AKATHISIA [None]
  - FALL [None]
  - MUSCLE CONTRACTIONS INVOLUNTARY [None]
  - EATING DISORDER [None]
